FAERS Safety Report 25985697 (Version 1)
Quarter: 2025Q4

REPORT INFORMATION
  Report Type: Spontaneous
  Country: CN (occurrence: CN)
  Receive Date: 20251031
  Receipt Date: 20251031
  Transmission Date: 20260118
  Serious: Yes (Hospitalization)
  Sender: NOVO NORDISK
  Company Number: None

PATIENT
  Age: 41 Year
  Sex: Female
  Weight: 84 kg

DRUGS (1)
  1. XULTOPHY 100/3.6 [Suspect]
     Active Substance: INSULIN DEGLUDEC\LIRAGLUTIDE
     Indication: Type 2 diabetes mellitus
     Dosage: 12 IU, QD
     Route: 058
     Dates: start: 20251006, end: 20251008

REACTIONS (1)
  - Measles [Recovered/Resolved]

NARRATIVE: CASE EVENT DATE: 20251008
